FAERS Safety Report 10580832 (Version 1)
Quarter: 2014Q4

REPORT INFORMATION
  Report Type: Spontaneous
  Country: SK (occurrence: SK)
  Receive Date: 20141113
  Receipt Date: 20141113
  Transmission Date: 20150529
  Serious: Yes (Death, Other)
  Sender: FDA-Public Use
  Company Number: SK-ROCHE-1488515

PATIENT
  Age: 50 Year
  Sex: Female

DRUGS (14)
  1. FLUOROURACIL. [Concomitant]
     Active Substance: FLUOROURACIL
     Dosage: THIRD LINE THERAPY
     Route: 065
     Dates: start: 201307
  2. IRINOTECAN [Concomitant]
     Active Substance: IRINOTECAN
     Dosage: THIRD LINE THERAPY
     Route: 065
     Dates: start: 201307
  3. AFLIBERCEPT [Concomitant]
     Active Substance: AFLIBERCEPT
     Dosage: THIRD LINE THERAPY
     Route: 065
     Dates: start: 201307
  4. BEVACIZUMAB [Suspect]
     Active Substance: BEVACIZUMAB
     Indication: COLORECTAL ADENOCARCINOMA
     Dosage: FIRST LINE THERAPY
     Route: 065
     Dates: start: 201006
  5. BEVACIZUMAB [Suspect]
     Active Substance: BEVACIZUMAB
     Dosage: MAINTAINACE THERAPY
     Route: 065
     Dates: start: 20101013, end: 201305
  6. OXALIPLATIN. [Concomitant]
     Active Substance: OXALIPLATIN
     Dosage: FIRST LINE THERAPY
     Route: 065
  7. FLUOROURACIL. [Concomitant]
     Active Substance: FLUOROURACIL
     Dosage: SECOND LINE THERAPY
     Route: 065
     Dates: start: 201206
  8. CAPECITABINE. [Suspect]
     Active Substance: CAPECITABINE
     Indication: COLORECTAL ADENOCARCINOMA
     Dosage: FIRST LINE THERAPY
     Route: 065
     Dates: start: 201006
  9. CAPECITABINE. [Suspect]
     Active Substance: CAPECITABINE
     Dosage: MAINTAINACE THERAPY
     Route: 065
     Dates: start: 20101013, end: 201305
  10. BEVACIZUMAB [Suspect]
     Active Substance: BEVACIZUMAB
     Dosage: SECOND LINE THERAPY
     Route: 065
     Dates: start: 201206, end: 201305
  11. PANTOPRAZOLE [Concomitant]
     Active Substance: PANTOPRAZOLE SODIUM
  12. FOLINIC ACID [Concomitant]
     Active Substance: LEUCOVORIN
     Dosage: SECOND LINE THERAPY
     Route: 065
     Dates: start: 201206
  13. FOLINIC ACID [Concomitant]
     Active Substance: LEUCOVORIN
     Dosage: THIRD LINE THERAPY
     Route: 065
     Dates: start: 201307
  14. IRINOTECAN [Concomitant]
     Active Substance: IRINOTECAN
     Dosage: SECOND LINE THERAPY
     Route: 065
     Dates: start: 201206

REACTIONS (4)
  - Hypertension [Unknown]
  - Palmar-plantar erythrodysaesthesia syndrome [Unknown]
  - Disease progression [Fatal]
  - Hepatic failure [Fatal]

NARRATIVE: CASE EVENT DATE: 201409
